FAERS Safety Report 9229139 (Version 1)
Quarter: 2013Q2

REPORT INFORMATION
  Report Type: Spontaneous
  Country: BR (occurrence: BR)
  Receive Date: 20130412
  Receipt Date: 20130412
  Transmission Date: 20140414
  Serious: Yes (Hospitalization, Other)
  Sender: FDA-Public Use
  Company Number: BR-ABBOTT-12P-020-0959684-00

PATIENT
  Sex: Female

DRUGS (2)
  1. HUMIRA 40 MG/ 0.8 ML PRE-FILLED SYRINGE [Suspect]
     Indication: CROHN^S DISEASE
     Dosage: WEEK 0
     Route: 058
     Dates: start: 201207
  2. HUMIRA 40 MG/ 0.8 ML PRE-FILLED SYRINGE [Suspect]
     Dosage: WEEK 1
     Route: 058

REACTIONS (13)
  - Drug-induced liver injury [Unknown]
  - Tuberculosis [Unknown]
  - Pneumonia [Unknown]
  - Chest pain [Unknown]
  - Pyrexia [Recovering/Resolving]
  - Back pain [Unknown]
  - Dyspnoea [Unknown]
  - Fall [Unknown]
  - Chest injury [Unknown]
  - Retching [Unknown]
  - Pleuritic pain [Unknown]
  - Pleural disorder [Unknown]
  - Dyspnoea [Unknown]
